FAERS Safety Report 7054160-7 (Version None)
Quarter: 2010Q4

REPORT INFORMATION
  Report Type: 
  Country: None (occurrence: None)
  Receive Date: 20101020
  Receipt Date: 20101011
  Transmission Date: 20110411
  Serious: Yes (Hospitalization)
  Sender: FDA-Public Use
  Company Number: US-NAPPMUNDI-USA-2010-0047365

PATIENT
  Sex: Female

DRUGS (2)
  1. OXYCONTIN [Suspect]
     Indication: PAIN
     Dosage: 80 MG, TID
     Dates: start: 20100919
  2. DURAGESIC-100 [Concomitant]
     Indication: PAIN
     Dosage: UNK

REACTIONS (14)
  - ABDOMINAL DISCOMFORT [None]
  - CHILLS [None]
  - DRUG INEFFECTIVE [None]
  - GASTROINTESTINAL DISORDER [None]
  - GASTROOESOPHAGEAL REFLUX DISEASE [None]
  - HYPERHIDROSIS [None]
  - HYPOKALAEMIA [None]
  - MALAISE [None]
  - NAUSEA [None]
  - OESOPHAGEAL PAIN [None]
  - PRODUCT SIZE ISSUE [None]
  - PRODUCT TASTE ABNORMAL [None]
  - RETCHING [None]
  - VOMITING [None]
